FAERS Safety Report 9759971 (Version 1)
Quarter: 2013Q4

REPORT INFORMATION
  Report Type: Spontaneous
  Country: US (occurrence: US)
  Receive Date: 20131216
  Receipt Date: 20131216
  Transmission Date: 20140711
  Serious: Yes (Other)
  Sender: FDA-Public Use
  Company Number: US-MYLANLABS-2013S1027515

PATIENT
  Age: 3 Year
  Sex: Female

DRUGS (5)
  1. CARBOPLATIN [Suspect]
     Indication: RETINOBLASTOMA
     Route: 065
  2. CARBOPLATIN [Suspect]
     Indication: RETINOBLASTOMA
     Dosage: 20MG CARBOPLATIN IN 2ML (10 MG/ML); 3 INJECTIONS DELIVERED AT 3-WK INTERVALS
     Route: 047
  3. ETOPOSIDE [Suspect]
     Indication: RETINOBLASTOMA
     Route: 065
  4. VINCRISTINE [Suspect]
     Indication: RETINOBLASTOMA
     Route: 065
  5. CICLOSPORIN [Suspect]
     Indication: RETINOBLASTOMA
     Route: 065

REACTIONS (1)
  - Ocular vascular disorder [Unknown]
